FAERS Safety Report 4910408-3 (Version None)
Quarter: 2006Q1

REPORT INFORMATION
  Report Type: 
  Country: None (occurrence: None)
  Receive Date: 20060209
  Receipt Date: 20060127
  Transmission Date: 20060701
  Serious: Yes (Other)
  Sender: FDA-Public Use
  Company Number: 2006014012

PATIENT
  Age: 50 Year
  Sex: Male
  Weight: 79.3795 kg

DRUGS (4)
  1. ZITHROMAX [Suspect]
     Indication: SINUSITIS
     Dosage: 250 MEQ (250 MG, 1 IN 1 D), ORAL
     Route: 048
     Dates: start: 20050101
  2. ZITHROMAX [Suspect]
     Indication: TOOTHACHE
     Dosage: 250 MEQ (250 MG, 1 IN 1 D), ORAL
     Route: 048
     Dates: start: 20050101
  3. ROLAIDS [Suspect]
     Indication: ILL-DEFINED DISORDER
     Dates: start: 20060101
  4. PEPCID AC [Concomitant]

REACTIONS (3)
  - THERAPY NON-RESPONDER [None]
  - TOOTH INFECTION [None]
  - TOOTHACHE [None]
